FAERS Safety Report 15047711 (Version 1)
Quarter: 2018Q2

REPORT INFORMATION
  Report Type: Spontaneous
  Country: US (occurrence: US)
  Receive Date: 20180621
  Receipt Date: 20180621
  Transmission Date: 20180711
  Serious: No
  Sender: FDA-Public Use
  Company Number: US-BIOGEN-2011BI029222

PATIENT
  Age: 66 Year
  Sex: Female

DRUGS (2)
  1. TYSABRI [Suspect]
     Active Substance: NATALIZUMAB
     Route: 065
     Dates: start: 20080523
  2. TYSABRI [Suspect]
     Active Substance: NATALIZUMAB
     Indication: MULTIPLE SCLEROSIS
     Route: 042
     Dates: start: 20080523, end: 20111025

REACTIONS (20)
  - Back disorder [Unknown]
  - Intervertebral disc degeneration [Not Recovered/Not Resolved]
  - Osteoporosis [Not Recovered/Not Resolved]
  - Stress [Not Recovered/Not Resolved]
  - Cellulitis [Recovered/Resolved]
  - Central nervous system lesion [Unknown]
  - Fall [Recovered/Resolved]
  - Spinal disorder [Recovered/Resolved]
  - Cognitive disorder [Not Recovered/Not Resolved]
  - Back pain [Not Recovered/Not Resolved]
  - Limb injury [Unknown]
  - Gait disturbance [Unknown]
  - Arthritis [Not Recovered/Not Resolved]
  - Peroneal nerve palsy [Unknown]
  - Nausea [Unknown]
  - Weight decreased [Not Recovered/Not Resolved]
  - Hypoaesthesia [Unknown]
  - Intervertebral disc protrusion [Not Recovered/Not Resolved]
  - Sciatica [Not Recovered/Not Resolved]
  - Vomiting [Unknown]

NARRATIVE: CASE EVENT DATE: 2011
